FAERS Safety Report 18099659 (Version 9)
Quarter: 2020Q4

REPORT INFORMATION
  Report Type: Report from Study
  Country: UA (occurrence: UA)
  Receive Date: 20200731
  Receipt Date: 20201217
  Transmission Date: 20210113
  Serious: Yes (Hospitalization, Other)
  Sender: FDA-Public Use
  Company Number: UA-CELGENEUS-UKR-20200706711

PATIENT
  Age: 49 Year
  Sex: Female
  Weight: 70 kg

DRUGS (11)
  1. CISPLATIN. [Concomitant]
     Active Substance: CISPLATIN
     Indication: SQUAMOUS CELL CARCINOMA OF THE CERVIX
     Dosage: DOSE NOT PROVIDED
     Route: 041
  2. MANNIT [Concomitant]
     Indication: SQUAMOUS CELL CARCINOMA OF THE CERVIX
     Dosage: 15% V/V
     Route: 041
  3. OSITRON [Concomitant]
     Indication: SQUAMOUS CELL CARCINOMA OF THE CERVIX
     Dosage: DOSE NOT PROVIDED
     Route: 050
  4. RHEOSORBILAKT [Concomitant]
     Indication: SQUAMOUS CELL CARCINOMA OF THE CERVIX
     Dosage: DOSE NOT PROVIDED
     Route: 041
  5. XELODA [Concomitant]
     Active Substance: CAPECITABINE
     Indication: SQUAMOUS CELL CARCINOMA OF THE CERVIX
     Dosage: DOSE NOT PROVIDED
     Route: 048
  6. OZANIMOD. [Suspect]
     Active Substance: OZANIMOD
     Indication: MULTIPLE SCLEROSIS
     Dosage: 1 CAPSULE
     Route: 048
     Dates: start: 20161026, end: 20200721
  7. ACIDUM ASCORBINI [Concomitant]
     Indication: SQUAMOUS CELL CARCINOMA OF THE CERVIX
     Dosage: DOSE NOT PROVIDED
     Route: 050
  8. METHILURACILIUM [Concomitant]
     Indication: SQUAMOUS CELL CARCINOMA OF THE CERVIX
     Dosage: 1 (SUPPOSITORY DOSING UNIT)
     Route: 050
  9. RIBOKSIN [Concomitant]
     Indication: SQUAMOUS CELL CARCINOMA OF THE CERVIX
     Dosage: DOSE NOT PROVIDED
     Route: 050
  10. PANANGIN [Concomitant]
     Active Substance: MAGNESIUM ASPARTATE\POTASSIUM ASPARTATE
     Indication: SQUAMOUS CELL CARCINOMA OF THE CERVIX
     Dosage: DOSE NOT PROVIDED
     Route: 050
  11. DEXAMETHASONE. [Concomitant]
     Active Substance: DEXAMETHASONE
     Indication: SQUAMOUS CELL CARCINOMA OF THE CERVIX
     Dosage: DOSE NOT PROVIDED
     Route: 050

REACTIONS (1)
  - Squamous cell carcinoma of the cervix [Not Recovered/Not Resolved]

NARRATIVE: CASE EVENT DATE: 20200623
